FAERS Safety Report 12085678 (Version 2)
Quarter: 2016Q1

REPORT INFORMATION
  Report Type: Report from Study
  Country: US (occurrence: US)
  Receive Date: 20160217
  Receipt Date: 20160229
  Transmission Date: 20160526
  Serious: Yes (Hospitalization)
  Sender: FDA-Public Use
  Company Number: US-ACTELION-A-US2016-131305

PATIENT
  Age: 48 Year
  Sex: Female

DRUGS (12)
  1. CALAN [Concomitant]
     Active Substance: VERAPAMIL HYDROCHLORIDE
     Dosage: 240 UNK, QD
     Dates: start: 20130517
  2. POTASSIUM CHLORIDE. [Concomitant]
     Active Substance: POTASSIUM CHLORIDE
     Dosage: 10 MEQ, UNK
  3. SILDENAFIL. [Suspect]
     Active Substance: SILDENAFIL
     Indication: PRODUCT USED FOR UNKNOWN INDICATION
     Dosage: 20 MG, UNK
     Route: 065
     Dates: start: 20150618
  4. BUPROPION HCL [Concomitant]
     Active Substance: BUPROPION HYDROCHLORIDE
     Dosage: 150 G, QPM
     Dates: start: 20130412
  5. ASA [Concomitant]
     Active Substance: ASPIRIN
     Dosage: 81 MG, QD
     Dates: start: 20130517
  6. BUMETANIDE. [Concomitant]
     Active Substance: BUMETANIDE
     Dosage: 1 MG, QD
     Dates: start: 20141120
  7. HYDRALAZINE [Concomitant]
     Active Substance: HYDRALAZINE HYDROCHLORIDE
     Dosage: 50 MG, TID
     Dates: start: 2013
  8. SUCRALFATE. [Concomitant]
     Active Substance: SUCRALFATE
     Dosage: 1 G, QID
  9. SYMBICORT [Concomitant]
     Active Substance: BUDESONIDE\FORMOTEROL FUMARATE DIHYDRATE
     Dosage: 160 /4.5, BID
  10. TRACLEER [Suspect]
     Active Substance: BOSENTAN
     Indication: PULMONARY ARTERIAL HYPERTENSION
     Dosage: 125 MG, BID
     Route: 048
     Dates: start: 20130517
  11. HAWTHORN [Concomitant]
     Dosage: 500 G, QD
     Dates: start: 20141022
  12. LOVASTATIN. [Concomitant]
     Active Substance: LOVASTATIN
     Dosage: 40 G, UNK
     Dates: start: 20150210

REACTIONS (2)
  - Pneumonia [Unknown]
  - Malaise [Unknown]

NARRATIVE: CASE EVENT DATE: 20160130
